FAERS Safety Report 8582359-7 (Version None)
Quarter: 2012Q2

REPORT INFORMATION
  Report Type: 
  Country: None (occurrence: None)
  Receive Date: 20120423
  Receipt Date: 20100624
  Transmission Date: 20120825
  Serious: Yes (Life-Threatening, Hospitalization)
  Sender: FDA-Public Use
  Company Number: PHHY2010US41586

PATIENT
  Age: 89 Year
  Sex: Male
  Weight: 57.6 kg

DRUGS (1)
  1. EXJADE [Suspect]
     Indication: MYELODYSPLASTIC SYNDROME
     Dosage: 500 MG, DAILY, ORAL
     Route: 048
     Dates: start: 20090915, end: 20100524

REACTIONS (2)
  - ULCER [None]
  - HAEMATEMESIS [None]
